FAERS Safety Report 8845229 (Version 1)
Quarter: 2012Q4

REPORT INFORMATION
  Report Type: Spontaneous
  Country: US (occurrence: None)
  Receive Date: 20121009
  Receipt Date: 20121009
  Transmission Date: 20130627
  Serious: Yes (Hospitalization)
  Sender: FDA-Public Use
  Company Number: 2012PROUSA02051

PATIENT

DRUGS (13)
  1. PROVENGE (SIPULEUCEL-T) SUSPENSION [Suspect]
     Indication: PROSTATE CANCER METASTATIC
     Dates: start: 20120517, end: 20120517
  2. PROVENGE (SIPULEUCEL-T) SUSPENSION [Suspect]
     Indication: PROSTATE CANCER METASTATIC
     Route: 042
     Dates: start: 20120601, end: 20120601
  3. PROVENGE (SIPULEUCEL-T) SUSPENSION [Suspect]
     Indication: PROSTATE CANCER METASTATIC
     Route: 042
     Dates: start: 20120614, end: 20120614
  4. HYDROXYCHLOROQUINE (HYDROXYCHLOROQUINE SULFATE) [Concomitant]
  5. LUPRON DEPOT (LEUPRORELIN ACETATE) [Concomitant]
  6. AMLODIPINE (AMLODIPINE) [Concomitant]
  7. LOVASTATIN (LOVASTATIN) [Concomitant]
  8. ACETAMINIPHEN (PARACETAMOL) [Concomitant]
  9. NAPROXEN SODIUM (NAPROXEN SODIUM) [Concomitant]
  10. WELLBUTRIN (BUPROPION HYDROCHLORIDE) [Concomitant]
  11. MULTIVITAMINS (ASCORBIC ACID, ERGOCALCIFEROL, FOLIC ACID, NICOTINAMIDE, PANTHENOL, RIBOFLAVIN, THIAMINE HYDROCHLORIDE) [Concomitant]
  12. ELOCON (MOMETASONE FUROATE) [Concomitant]
  13. MECLIZINE HCL (MECLOZINE HYDROCHLORIDE) [Concomitant]

REACTIONS (10)
  - Haemorrhage intracranial [None]
  - Sepsis [None]
  - Dehydration [None]
  - Fall [None]
  - Escherichia bacteraemia [None]
  - Subdural haematoma [None]
  - Subarachnoid haemorrhage [None]
  - Cerebral infarction [None]
  - Craniocerebral injury [None]
  - Metastases to central nervous system [None]
